FAERS Safety Report 24941351 (Version 1)
Quarter: 2025Q1

REPORT INFORMATION
  Report Type: Spontaneous
  Country: US (occurrence: None)
  Receive Date: 20250206
  Receipt Date: 20250206
  Transmission Date: 20250409
  Serious: Yes (Hospitalization)
  Sender: FDA-CTU
  Company Number: None

PATIENT
  Age: 53 Year
  Sex: Female

DRUGS (9)
  1. ADEMPAS [Suspect]
     Active Substance: RIOCIGUAT
     Indication: Pulmonary hypertension
     Dosage: 2MG TID ORAL
     Route: 048
     Dates: start: 20220826
  2. OPSUMIT [Concomitant]
     Active Substance: MACITENTAN
  3. NORCO [Concomitant]
     Active Substance: ACETAMINOPHEN\HYDROCODONE BITARTRATE
  4. MIDODRINE [Concomitant]
     Active Substance: MIDODRINE
  5. BENZONATATE [Concomitant]
     Active Substance: BENZONATATE
  6. LEVOTHYROXINE [Concomitant]
     Active Substance: LEVOTHYROXINE
  7. WARFARIN [Concomitant]
     Active Substance: WARFARIN
  8. BUMETANIDE [Concomitant]
     Active Substance: BUMETANIDE
  9. SPIRONOLACTONE [Concomitant]
     Active Substance: SPIRONOLACTONE

REACTIONS (5)
  - Humerus fracture [None]
  - Fall [None]
  - Nausea [None]
  - Haematoma [None]
  - Abdominal pain lower [None]

NARRATIVE: CASE EVENT DATE: 20250202
